FAERS Safety Report 6349838-4 (Version None)
Quarter: 2009Q3

REPORT INFORMATION
  Report Type: 
  Country: None (occurrence: None)
  Receive Date: 20090911
  Receipt Date: 20090904
  Transmission Date: 20100115
  Serious: Yes (Other)
  Sender: FDA-Public Use
  Company Number: PHHY2009BR18735

PATIENT
  Age: 77 Year
  Sex: Male
  Weight: 68 kg

DRUGS (7)
  1. TEGRETOL [Suspect]
     Indication: GLIOSIS
     Dosage: 1 DF, BID
     Route: 048
     Dates: start: 20090401
  2. GINKGO BILOBA [Concomitant]
     Indication: GLIOSIS
     Dosage: 1 TABLET DAILY
     Route: 048
     Dates: start: 20081101
  3. DOXAZOSIN [Concomitant]
     Indication: PROSTATIC DISORDER
     Dosage: 1 TABLET DAILY
     Route: 048
  4. FINASTERIDE [Concomitant]
     Indication: PROSTATIC DISORDER
     Dosage: 1 TABLET DAILY
     Route: 048
  5. TIMOLOL [Concomitant]
     Indication: INTRAOCULAR PRESSURE INCREASED
     Dosage: 1 DRP, BID
  6. BRIMONIDINE [Concomitant]
     Indication: INTRAOCULAR PRESSURE INCREASED
     Dosage: 1 DRP, BID
  7. DORZOLAMIDE [Concomitant]
     Indication: INTRAOCULAR PRESSURE INCREASED
     Dosage: 1 DRP, BID

REACTIONS (2)
  - TOOTH DISORDER [None]
  - TOOTH EXTRACTION [None]
